FAERS Safety Report 4306820-6 (Version None)
Quarter: 2004Q1

REPORT INFORMATION
  Report Type: 
  Country: None (occurrence: None)
  Receive Date: 20040225
  Receipt Date: 20040206
  Transmission Date: 20041129
  Serious: Yes (Other)
  Sender: FDA-Public Use
  Company Number: USA040258707

PATIENT
  Age: 55 Year
  Sex: Male

DRUGS (2)
  1. FORTEO [Suspect]
     Indication: OSTEOPOROSIS
     Dates: start: 20021201
  2. REMICADE [Concomitant]

REACTIONS (2)
  - FALL [None]
  - WRIST FRACTURE [None]
